FAERS Safety Report 10991129 (Version 2)
Quarter: 2015Q2

REPORT INFORMATION
  Report Type: Report from Study
  Country: JP (occurrence: JP)
  Receive Date: 20150406
  Receipt Date: 20150514
  Transmission Date: 20150821
  Serious: Yes (Hospitalization, Other)
  Sender: FDA-Public Use
  Company Number: JP-SHIRE-JP201502991

PATIENT
  Age: 7 Year
  Sex: Male

DRUGS (2)
  1. IDURSULFASE [Suspect]
     Active Substance: IDURSULFASE
     Dosage: 0.5 MG/KG, UNKNOWN
     Route: 041
     Dates: start: 20080512
  2. IDURSULFASE [Suspect]
     Active Substance: IDURSULFASE
     Indication: MUCOPOLYSACCHARIDOSIS II
     Dosage: 18 MG, UNKNOWN
     Route: 041
     Dates: start: 20140901

REACTIONS (1)
  - Hydrocephalus [Unknown]

NARRATIVE: CASE EVENT DATE: 201409
